FAERS Safety Report 16020444 (Version 1)
Quarter: 2019Q1

REPORT INFORMATION
  Report Type: Report from Study
  Country: None (occurrence: CZ)
  Receive Date: 20190301
  Receipt Date: 20190301
  Transmission Date: 20190418
  Serious: Yes (Death, Hospitalization)
  Sender: FDA-Public Use
  Company Number: CZ-ABBVIE-19K-217-2684611-00

PATIENT
  Age: 51 Year
  Sex: Female

DRUGS (1)
  1. HUMIRA [Suspect]
     Active Substance: ADALIMUMAB
     Indication: RHEUMATOID ARTHRITIS
     Route: 058
     Dates: start: 20180619, end: 20181116

REACTIONS (9)
  - Death [Fatal]
  - Salmonella test positive [Unknown]
  - Osteomyelitis [Unknown]
  - Abscess limb [Unknown]
  - Leg amputation [Unknown]
  - Staphylococcus test positive [Unknown]
  - Septic shock [Unknown]
  - Arthritis bacterial [Unknown]
  - Postoperative abscess [Unknown]

NARRATIVE: CASE EVENT DATE: 201809
